FAERS Safety Report 6126456-4 (Version None)
Quarter: 2009Q1

REPORT INFORMATION
  Report Type: 
  Country: None (occurrence: None)
  Receive Date: 20090320
  Receipt Date: 20090310
  Transmission Date: 20090719
  Serious: Yes (Hospitalization)
  Sender: FDA-Public Use
  Company Number: FR-AMGEN-UK293531

PATIENT
  Sex: Male

DRUGS (10)
  1. PANITUMUMAB [Suspect]
     Indication: SQUAMOUS CELL CARCINOMA
     Route: 042
     Dates: start: 20080610, end: 20080610
  2. CIBACEN [Concomitant]
     Route: 050
     Dates: start: 19850101, end: 20081009
  3. LOPRESSOR [Concomitant]
     Route: 050
     Dates: start: 19850101, end: 20081008
  4. LOPRESSOR [Concomitant]
     Route: 050
     Dates: start: 20081009
  5. NEXIUM [Concomitant]
     Route: 050
     Dates: start: 20060101
  6. SODIUM BICARBONATE [Concomitant]
     Route: 048
     Dates: start: 20080610
  7. ERYTHROMYCIN [Concomitant]
     Route: 061
     Dates: start: 20080618, end: 20080702
  8. DEXERYL CREME [Concomitant]
     Route: 061
     Dates: start: 20080620
  9. FERROUS SULFATE TAB [Concomitant]
     Route: 050
     Dates: start: 20080101
  10. DOXYCYCLINE [Concomitant]
     Route: 050
     Dates: start: 20080618

REACTIONS (1)
  - THROMBOSIS [None]
